FAERS Safety Report 6337874-3 (Version None)
Quarter: 2009Q3

REPORT INFORMATION
  Report Type: 
  Country: None (occurrence: None)
  Receive Date: 20090902
  Receipt Date: 20090828
  Transmission Date: 20100115
  Serious: Yes (Death, Other)
  Sender: FDA-Public Use
  Company Number: CZ-ROXANE LABORATORIES, INC.-2009-RO-00873RO

PATIENT
  Age: 11 Month
  Sex: Male

DRUGS (1)
  1. METHADONE HCL [Suspect]

REACTIONS (11)
  - BRAIN OEDEMA [None]
  - DRUG TOXICITY [None]
  - EMPHYSEMA [None]
  - LYMPHADENOPATHY [None]
  - RENAL DISORDER [None]
  - RENAL TUBULAR DISORDER [None]
  - SPLENOMEGALY [None]
  - THYMUS DISORDER [None]
  - TOXICOLOGIC TEST ABNORMAL [None]
  - UNRESPONSIVE TO STIMULI [None]
  - VENOUS INSUFFICIENCY [None]
